FAERS Safety Report 6091067-6 (Version None)
Quarter: 2009Q1

REPORT INFORMATION
  Report Type: 
  Country: None (occurrence: None)
  Receive Date: 20090225
  Receipt Date: 20090213
  Transmission Date: 20090719
  Serious: Yes (Other)
  Sender: FDA-Public Use
  Company Number: JP-PFIZER INC-2009170851

PATIENT

DRUGS (5)
  1. SELARA [Suspect]
     Dosage: 50 MG, 1X/DAY
     Route: 048
  2. ASPIRIN [Concomitant]
     Route: 048
  3. LENDORMIN [Concomitant]
     Route: 048
  4. MAGNESIUM OXIDE [Concomitant]
     Route: 048
  5. MARZULENE S [Concomitant]
     Route: 048

REACTIONS (1)
  - BLOOD ALKALINE PHOSPHATASE INCREASED [None]
